FAERS Safety Report 10479873 (Version 2)
Quarter: 2014Q4

REPORT INFORMATION
  Report Type: Spontaneous
  Country: DE (occurrence: DE)
  Receive Date: 20140929
  Receipt Date: 20141003
  Transmission Date: 20150528
  Serious: Yes (Life-Threatening)
  Sender: FDA-Public Use
  Company Number: DE-ROCHE-1467048

PATIENT
  Age: 10 Year
  Sex: Male
  Weight: 20 kg

DRUGS (8)
  1. FUROSEMID [Concomitant]
     Active Substance: FUROSEMIDE
     Indication: CARDIAC FAILURE
  2. ENALAPRIL [Concomitant]
     Active Substance: ENALAPRIL
     Indication: CARDIAC FAILURE
     Route: 048
  3. NUTROPIN AQ [Suspect]
     Active Substance: SOMATROPIN
     Indication: DWARFISM
     Dosage: 10 ML/2 ML
     Route: 058
     Dates: start: 20140618, end: 2014
  4. SPIRONOLACTON [Concomitant]
     Active Substance: SPIRONOLACTONE
     Indication: CARDIAC FAILURE
     Route: 048
  5. CARVEDILOL. [Concomitant]
     Active Substance: CARVEDILOL
     Indication: CARDIAC FAILURE
  6. MARCUMAR [Concomitant]
     Active Substance: PHENPROCOUMON
     Indication: MITRAL VALVE REPLACEMENT
     Route: 048
  7. HYDROCHLOROTHIAZIDE. [Concomitant]
     Active Substance: HYDROCHLOROTHIAZIDE
     Route: 048
     Dates: start: 20140716
  8. NUTROPIN AQ [Suspect]
     Active Substance: SOMATROPIN
     Dosage: 10 ML/2 ML
     Route: 058

REACTIONS (2)
  - Multi-organ failure [Recovering/Resolving]
  - Product use issue [Unknown]
